FAERS Safety Report 20940914 (Version 5)
Quarter: 2022Q4

REPORT INFORMATION
  Report Type: Report from Study
  Country: US (occurrence: US)
  Receive Date: 20220609
  Receipt Date: 20221006
  Transmission Date: 20230113
  Serious: No
  Sender: FDA-Public Use
  Company Number: US-NOVARTISTESTPH-NVSC2022US132837

PATIENT
  Sex: Male

DRUGS (2)
  1. ENTRESTO [Suspect]
     Active Substance: SACUBITRIL\VALSARTAN
     Indication: Cardiac failure congestive
     Dosage: 1 DOSAGE FORM, BID (24/26)
     Route: 048
  2. ENTRESTO [Suspect]
     Active Substance: SACUBITRIL\VALSARTAN
     Dosage: UNK UNK, BID (49/51MG 1/2 TAB IN THE AM AND 1 TAB IN THE PM)
     Route: 048

REACTIONS (5)
  - Hypertension [Unknown]
  - Dizziness [Recovered/Resolved]
  - Hypotension [Unknown]
  - Dizziness [Recovering/Resolving]
  - Wrong technique in product usage process [Unknown]
